FAERS Safety Report 8352211-0 (Version None)
Quarter: 2012Q2

REPORT INFORMATION
  Report Type: 
  Country: None (occurrence: None)
  Receive Date: 20120511
  Receipt Date: 20120503
  Transmission Date: 20120825
  Serious: Yes (Life-Threatening, Hospitalization, Other)
  Sender: FDA-Public Use
  Company Number: US-BAYER-2011-109679

PATIENT
  Age: 16 Year
  Sex: Female
  Weight: 79.365 kg

DRUGS (4)
  1. DROSPIRENONE AND ETHINYL ESTRADIOL [Suspect]
     Indication: POLYCYSTIC OVARIES
     Dosage: UNK
     Dates: start: 20080801, end: 20091201
  2. DORYX DR [Concomitant]
     Dosage: 100 MG, UNK
  3. DICYCLOMINE [Concomitant]
     Dosage: 20 MG, UNK
  4. YASMIN [Suspect]
     Indication: POLYCYSTIC OVARIES
     Dosage: UNK
     Dates: start: 20060801, end: 20080801

REACTIONS (9)
  - CHOLECYSTITIS CHRONIC [None]
  - CHOLECYSTITIS [None]
  - VISUAL IMPAIRMENT [None]
  - INJURY [None]
  - ORGAN FAILURE [None]
  - ANXIETY [None]
  - ANHEDONIA [None]
  - PAIN [None]
  - GENERAL PHYSICAL HEALTH DETERIORATION [None]
